FAERS Safety Report 8247553-3 (Version None)
Quarter: 2012Q1

REPORT INFORMATION
  Report Type: 
  Country: None (occurrence: None)
  Receive Date: 20120330
  Receipt Date: 20120323
  Transmission Date: 20120608
  Serious: Yes (Hospitalization, Other)
  Sender: FDA-Public Use
  Company Number: US-ABBOTT-12P-163-0918561-00

PATIENT
  Age: 53 Year
  Sex: Female

DRUGS (16)
  1. HUMIRA [Suspect]
     Indication: CROHN'S DISEASE
     Dosage: ONE DOSE ONLY
     Dates: start: 20101213, end: 20101213
  2. AMITRIPTYLINE HCL [Concomitant]
     Indication: PRODUCT USED FOR UNKNOWN INDICATION
  3. IMODIUM [Concomitant]
     Indication: DIARRHOEA
  4. ONDANESTERON [Concomitant]
     Indication: NAUSEA
  5. VALIUM [Concomitant]
     Indication: ANXIOLYTIC THERAPY
  6. CLARITIN [Concomitant]
     Indication: HYPERSENSITIVITY
     Dosage: DAILY DOSE: 5MG
  7. IBUPROFEN [Concomitant]
     Indication: PAIN
  8. VALIUM [Concomitant]
     Indication: IRRITABLE BOWEL SYNDROME
  9. MERCAPTOPURINE [Concomitant]
     Indication: PRODUCT USED FOR UNKNOWN INDICATION
     Dosage: 2 TABS DAILY
  10. DICYCLOMINE [Concomitant]
     Indication: MUSCLE SPASMS
  11. DICYCLOMINE [Concomitant]
  12. EVENING PRIMROSE OIL [Concomitant]
     Indication: HOT FLUSH
     Dosage: DAILY
  13. DIPHENOXYLATE HCL + ATROPINE SULFATE [Concomitant]
     Indication: DIARRHOEA
  14. ZOLPIDEM [Concomitant]
     Indication: INSOMNIA
     Dosage: AT HS
  15. FOLIC ACID [Concomitant]
     Indication: PRODUCT USED FOR UNKNOWN INDICATION
     Dosage: DAILY
  16. KLOR-CON [Concomitant]
     Indication: BLOOD POTASSIUM DECREASED
     Dosage: DAILY DOSE: 2 TABS

REACTIONS (8)
  - ABDOMINAL PAIN [None]
  - POST GASTRIC SURGERY SYNDROME [None]
  - WEIGHT DECREASED [None]
  - INTESTINAL OBSTRUCTION [None]
  - GASTROINTESTINAL DISORDER [None]
  - HYPERTENSION [None]
  - CROHN'S DISEASE [None]
  - FLATULENCE [None]
